FAERS Safety Report 11249175 (Version 1)
Quarter: 2015Q3

REPORT INFORMATION
  Report Type: Spontaneous
  Country: US (occurrence: US)
  Receive Date: 20150708
  Receipt Date: 20150708
  Transmission Date: 20151125
  Serious: Yes (Other)
  Sender: FDA-Public Use
  Company Number: US-ENDO PHARMACEUTICALS INC.-2015-001666

PATIENT
  Sex: Male

DRUGS (1)
  1. AVEED [Suspect]
     Active Substance: TESTOSTERONE UNDECANOATE
     Indication: HYPOGONADISM
     Route: 065
     Dates: start: 201404

REACTIONS (1)
  - Chronic kidney disease [Unknown]
